FAERS Safety Report 9997523 (Version 5)
Quarter: 2014Q2

REPORT INFORMATION
  Report Type: Spontaneous
  Country: US (occurrence: US)
  Receive Date: 20140311
  Receipt Date: 20140421
  Transmission Date: 20141212
  Serious: Yes (Disabling, Other)
  Sender: FDA-Public Use
  Company Number: US-UCBSA-112949

PATIENT
  Age: 67 Year
  Sex: Male
  Weight: 64.86 kg

DRUGS (12)
  1. VIMPAT [Suspect]
     Indication: GENERALISED TONIC-CLONIC SEIZURE
     Dates: start: 201403
  2. VIMPAT [Suspect]
     Indication: PARTIAL SEIZURES WITH SECONDARY GENERALISATION
     Dates: start: 201403
  3. VIMPAT [Suspect]
     Indication: GENERALISED TONIC-CLONIC SEIZURE
     Dates: start: 20140124, end: 201403
  4. VIMPAT [Suspect]
     Indication: PARTIAL SEIZURES WITH SECONDARY GENERALISATION
     Dates: start: 20140124, end: 201403
  5. VIMPAT [Suspect]
     Indication: GENERALISED TONIC-CLONIC SEIZURE
     Dates: start: 201209
  6. VIMPAT [Suspect]
     Indication: PARTIAL SEIZURES WITH SECONDARY GENERALISATION
     Dates: start: 201209
  7. KEPPRA [Suspect]
     Indication: PARTIAL SEIZURES WITH SECONDARY GENERALISATION
     Dosage: UNKNOWN DOSE
     Dates: start: 2004
  8. KEPPRA [Suspect]
     Indication: PARTIAL SEIZURES WITH SECONDARY GENERALISATION
  9. KEPPRA [Suspect]
     Indication: PARTIAL SEIZURES WITH SECONDARY GENERALISATION
  10. CALCIUM [Concomitant]
     Indication: OSTEOPOROSIS
     Dosage: DAILY
  11. DILANTIN [Concomitant]
     Indication: COMPLEX PARTIAL SEIZURES
     Dosage: 400 MG QOD, STARTED IN HIS 20^S
  12. DILANTIN [Concomitant]
     Indication: COMPLEX PARTIAL SEIZURES
     Dosage: 300 MG QOD

REACTIONS (12)
  - Convulsion [Recovering/Resolving]
  - Generalised tonic-clonic seizure [Recovered/Resolved]
  - Physical assault [Unknown]
  - Laryngeal injury [Unknown]
  - Laryngospasm [Unknown]
  - Intentional product misuse [Unknown]
  - Confusional state [Recovering/Resolving]
  - Hallucination [Recovering/Resolving]
  - Complex partial seizures [Unknown]
  - Anger [Recovering/Resolving]
  - Tension [Recovering/Resolving]
  - Drug ineffective [Unknown]
